FAERS Safety Report 5319696-5 (Version None)
Quarter: 2007Q2

REPORT INFORMATION
  Report Type: 
  Country: None (occurrence: None)
  Receive Date: 20070502
  Receipt Date: 20070416
  Transmission Date: 20071010
  Serious: Yes (Other)
  Sender: FDA-Public Use
  Company Number: 2007EU000823

PATIENT
  Age: 55 Year
  Sex: Female

DRUGS (1)
  1. PROGRAF [Suspect]
     Indication: PEMPHIGOID
     Dosage: 0.1%, D, TOPICAL
     Route: 061

REACTIONS (2)
  - PRURITUS [None]
  - T-CELL LYMPHOMA [None]
